FAERS Safety Report 19224281 (Version 1)
Quarter: 2021Q2

REPORT INFORMATION
  Report Type: Spontaneous
  Country: US (occurrence: US)
  Receive Date: 20210506
  Receipt Date: 20210506
  Transmission Date: 20210717
  Serious: Yes (Hospitalization)
  Sender: FDA-Public Use
  Company Number: None

PATIENT
  Age: 51 Year
  Sex: Male

DRUGS (6)
  1. MONTELUKAST [Concomitant]
     Active Substance: MONTELUKAST SODIUM
     Dates: start: 20201230
  2. SIMVASTATIN TAB 40MG [Concomitant]
     Active Substance: SIMVASTATIN
     Dates: start: 20201230
  3. JANUMET TAB 50?1000 [Concomitant]
     Dates: start: 20201230
  4. OMEPRAZOLE CAP 40MG [Concomitant]
     Active Substance: OMEPRAZOLE
     Dates: start: 20201230
  5. LOSARTAN/HCT TAB 100?25 [Concomitant]
     Dates: start: 20201230
  6. NEULASTA [Suspect]
     Active Substance: PEGFILGRASTIM
     Indication: RHEUMATOID ARTHRITIS
     Dosage: ?          OTHER FREQUENCY:EVERY 3 WEEKS;?
     Route: 058
     Dates: start: 20210128

REACTIONS (1)
  - Bone pain [None]

NARRATIVE: CASE EVENT DATE: 20210424
